FAERS Safety Report 10043366 (Version 2)
Quarter: 2014Q2

REPORT INFORMATION
  Report Type: Spontaneous
  Country: US (occurrence: US)
  Receive Date: 20140328
  Receipt Date: 20140422
  Transmission Date: 20141212
  Serious: Yes (Other)
  Sender: FDA-Public Use
  Company Number: US-BAYER-2014-045066

PATIENT
  Age: 30 Year
  Sex: Female

DRUGS (9)
  1. YASMIN [Suspect]
  2. YAZ [Suspect]
  3. GIANVI [Suspect]
  4. OCELLA [Suspect]
  5. FLUCONAZOLE [Concomitant]
  6. FLONASE [Concomitant]
     Dosage: UNK
     Dates: start: 20051007
  7. PREDNISONE [Concomitant]
     Dosage: UNK
     Dates: start: 20051110
  8. TYLENOL WITH CODEINE [Concomitant]
  9. MOTRIN [Concomitant]

REACTIONS (5)
  - Pulmonary embolism [None]
  - Emotional distress [None]
  - Pain [None]
  - Injury [None]
  - Pain [None]
